FAERS Safety Report 5457647-3 (Version None)
Quarter: 2007Q3

REPORT INFORMATION
  Report Type: 
  Country: None (occurrence: None)
  Receive Date: 20070918
  Receipt Date: 20070906
  Transmission Date: 20080115
  Serious: Yes (Hospitalization, Other)
  Sender: FDA-Public Use
  Company Number: US-PFIZER INC-2007075266

PATIENT

DRUGS (1)
  1. LYRICA [Suspect]

REACTIONS (1)
  - METABOLIC ACIDOSIS [None]
